FAERS Safety Report 9849496 (Version 1)
Quarter: 2014Q1

REPORT INFORMATION
  Report Type: Spontaneous
  Country: US (occurrence: None)
  Receive Date: 20140124
  Receipt Date: 20140124
  Transmission Date: 20141002
  Serious: Yes (Other)
  Sender: FDA-Public Use
  Company Number: 2014P1000211

PATIENT
  Age: 42 Year
  Sex: Female
  Weight: 70.31 kg

DRUGS (6)
  1. ESCITALOPRAM TABLETS USP 20 MG [Suspect]
     Indication: DEPRESSION
     Route: 048
     Dates: start: 20140102, end: 20140109
  2. ADDERALL [Concomitant]
  3. CLONAZEPAM [Concomitant]
  4. PERCOCET [Concomitant]
  5. SOMA [Concomitant]
  6. FIORICET [Concomitant]

REACTIONS (15)
  - Contusion [None]
  - Night sweats [None]
  - Sleep terror [None]
  - Amnesia [None]
  - Abnormal behaviour [None]
  - Diplopia [None]
  - Headache [None]
  - Nausea [None]
  - Mental status changes [None]
  - Somnambulism [None]
  - Reaction to drug excipients [None]
  - Dysgraphia [None]
  - Aphasia [None]
  - Product substitution issue [None]
  - Product quality issue [None]
